FAERS Safety Report 8474201 (Version 5)
Quarter: 2013Q4

REPORT INFORMATION
  Report Type: Spontaneous
  Country: US (occurrence: US)
  Receive Date: 20120323
  Receipt Date: 20131219
  Transmission Date: 20140711
  Serious: Yes (Hospitalization, Other)
  Sender: FDA-Public Use
  Company Number: US-B.I. PHARMACEUTICALS,INC./RIDGEFIELD-2012-BP-04821BP

PATIENT
  Age: 84 Year
  Sex: Female

DRUGS (16)
  1. SPIRIVA HANDIHALER [Suspect]
     Indication: CHRONIC OBSTRUCTIVE PULMONARY DISEASE
     Dosage: 18 MCG
     Route: 055
     Dates: start: 2006
  2. FORADIL [Concomitant]
     Indication: ASTHMA
     Dosage: 1 PUF
     Route: 055
     Dates: start: 201204
  3. FORADIL [Concomitant]
     Indication: DYSPNOEA
     Route: 055
     Dates: start: 2008, end: 2008
  4. FORADIL [Concomitant]
     Indication: CHRONIC OBSTRUCTIVE PULMONARY DISEASE
  5. LEVOTHYROXINE [Concomitant]
     Indication: HYPOTHYROIDISM
     Dosage: 12.5 MCG
     Route: 048
     Dates: start: 2004
  6. METROPROLOL [Concomitant]
     Indication: HEART RATE INCREASED
     Dosage: 50 MCG
     Route: 048
     Dates: start: 200408
  7. METROPROLOL [Concomitant]
     Indication: HYPERTENSION
  8. LUTEIN [Concomitant]
     Indication: MACULAR DEGENERATION
     Dosage: 6 MCG
     Route: 048
     Dates: start: 2010
  9. LUTEIN [Concomitant]
     Indication: ROUTINE HEALTH MAINTENANCE
  10. ONE-A-DAY VITAMIN [Concomitant]
     Indication: VITAMIN SUPPLEMENTATION
     Route: 048
  11. CALCIUM D3 [Concomitant]
     Indication: VITAMIN SUPPLEMENTATION
     Route: 048
  12. MAGNESIUM [Concomitant]
     Indication: MINERAL SUPPLEMENTATION
     Dosage: 125 MG
     Route: 048
  13. ASPIRIN [Concomitant]
     Indication: PROPHYLAXIS
     Dosage: 325 MG
     Route: 048
  14. CALCIUM [Concomitant]
     Route: 048
  15. VITAMIN D [Concomitant]
     Route: 048
  16. MULTIVITAMIN [Concomitant]

REACTIONS (22)
  - Breast cancer [Recovered/Resolved]
  - Fall [Recovered/Resolved]
  - Pelvic fracture [Recovered/Resolved]
  - Pelvic fracture [Recovered/Resolved]
  - Cough [Not Recovered/Not Resolved]
  - Bronchitis [Recovered/Resolved]
  - Dyspnoea [Not Recovered/Not Resolved]
  - Headache [Recovered/Resolved]
  - Breast mass [Not Recovered/Not Resolved]
  - Fatigue [Not Recovered/Not Resolved]
  - Back injury [Not Recovered/Not Resolved]
  - Body height decreased [Not Recovered/Not Resolved]
  - Dyspnoea [Not Recovered/Not Resolved]
  - Osteoporosis [Not Recovered/Not Resolved]
  - Dyspnoea [Not Recovered/Not Resolved]
  - Fall [Recovered/Resolved]
  - Fall [Recovered/Resolved]
  - Hypertension [Not Recovered/Not Resolved]
  - Back disorder [Not Recovered/Not Resolved]
  - Headache [Recovered/Resolved]
  - Mydriasis [Recovered/Resolved]
  - Extra dose administered [Recovered/Resolved]
